FAERS Safety Report 5902341-5 (Version None)
Quarter: 2008Q3

REPORT INFORMATION
  Report Type: 
  Country: None (occurrence: None)
  Receive Date: 20080929
  Receipt Date: 20080926
  Transmission Date: 20090109
  Serious: Yes (Death)
  Sender: FDA-Public Use
  Company Number: GB-B.I. PHARMACEUTICALS,INC./RIDGEFIELD-2008-UK-01611UK

PATIENT
  Sex: Male

DRUGS (1)
  1. ATROVENT [Suspect]

REACTIONS (1)
  - MYOCARDIAL INFARCTION [None]
